FAERS Safety Report 18687671 (Version 4)
Quarter: 2021Q1

REPORT INFORMATION
  Report Type: Spontaneous
  Country: GB (occurrence: GB)
  Receive Date: 20201231
  Receipt Date: 20210207
  Transmission Date: 20210419
  Serious: Yes (Death, Other)
  Sender: FDA-Public Use
  Company Number: GB-AUROBINDO-AUR-APL-2020-063520

PATIENT
  Age: 49 Year
  Sex: Male

DRUGS (12)
  1. MIRTAZAPINE FILM?COATED TABLET [Suspect]
     Active Substance: MIRTAZAPINE
     Dosage: UNK, {5 NG/ML FEMORAL BLOOD
     Route: 065
  2. METHADONE [Suspect]
     Active Substance: METHADONE HYDROCHLORIDE
     Indication: PRODUCT USED FOR UNKNOWN INDICATION
     Dosage: 685 NANOGRAM PER MILLLIITER (FEMORAL BLOOD)
     Route: 065
  3. TAPENTADOL [Suspect]
     Active Substance: TAPENTADOL
     Indication: PRODUCT USED FOR UNKNOWN INDICATION
     Dosage: 500 NANOGRAM PER MILLLIITER (FEMORAL BLOOD)
     Route: 065
  4. MIRTAZAPINE FILM?COATED TABLET [Suspect]
     Active Substance: MIRTAZAPINE
     Indication: PRODUCT USED FOR UNKNOWN INDICATION
     Dosage: 12 NANOGRAM PER MILLLIITER (FEMORAL BLOOD)
     Route: 065
  5. DIAZEPAM. [Suspect]
     Active Substance: DIAZEPAM
     Indication: PRODUCT USED FOR UNKNOWN INDICATION
     Dosage: 89 NANOGRAM PER MILLLIITER (FEMORAL BLOOD)
     Route: 065
  6. CLONAZEPAM. [Suspect]
     Active Substance: CLONAZEPAM
     Indication: PRODUCT USED FOR UNKNOWN INDICATION
     Dosage: UNK, {5 NG/ML FEMORAL BLOOD
     Route: 065
  7. ETIZOLAM [Suspect]
     Active Substance: ETIZOLAM
     Indication: PRODUCT USED FOR UNKNOWN INDICATION
     Dosage: 1.5 NANOGRAM PER MILLLIITER (FEMORAL BLOOD)
     Route: 065
  8. ETIZOLAM [Suspect]
     Active Substance: ETIZOLAM
     Dosage: 12 NANOGRAM PER MILLLIITER (FEMORAL BLOOD )
     Route: 065
  9. MORPHINE [Suspect]
     Active Substance: MORPHINE
     Indication: PRODUCT USED FOR UNKNOWN INDICATION
     Dosage: 44 NANOGRAM PER MILLLIITER (FEMORAL BLOOD )
     Route: 065
  10. PREGABALIN. [Suspect]
     Active Substance: PREGABALIN
     Indication: PRODUCT USED FOR UNKNOWN INDICATION
     Dosage: 38100 NANOGRAM PER MILLLIITER (FEMORAL BLOOD)
     Route: 065
  11. PREGABALIN. [Suspect]
     Active Substance: PREGABALIN
     Dosage: 15200 NANOGRAM PER MILLLIITER (FEMORAL BLOOD)
     Route: 065
  12. MORPHINE [Suspect]
     Active Substance: MORPHINE
     Dosage: 331 NANOGRAM PER MILLLIITER (FEMORAL BLOOD )
     Route: 065

REACTIONS (2)
  - Drug abuse [Unknown]
  - Toxicity to various agents [Fatal]
